FAERS Safety Report 15689712 (Version 2)
Quarter: 2018Q4

REPORT INFORMATION
  Report Type: Spontaneous
  Country: US (occurrence: US)
  Receive Date: 20181205
  Receipt Date: 20181214
  Transmission Date: 20190205
  Serious: Yes (Other)
  Sender: FDA-Public Use
  Company Number: US-UNITED THERAPEUTICS-UNT-2018-017692

PATIENT
  Age: 53 Year
  Sex: Female
  Weight: 58.5 kg

DRUGS (7)
  1. KEFLEX [Concomitant]
     Active Substance: CEPHALEXIN
     Indication: INFUSION SITE CELLULITIS
     Route: 065
  2. REMODULIN [Suspect]
     Active Substance: TREPROSTINIL
     Indication: PULMONARY ARTERIAL HYPERTENSION
     Dosage: 0.034 ?G/KG, CONTINUING
     Route: 058
     Dates: start: 20180904
  3. REMODULIN [Suspect]
     Active Substance: TREPROSTINIL
     Dosage: 0.038 ?G/KG, CONTINUING
     Route: 058
  4. REMODULIN [Suspect]
     Active Substance: TREPROSTINIL
     Dosage: 0.040 ?G/KG, CONTINUING
     Route: 058
  5. SILDENAFIL. [Suspect]
     Active Substance: SILDENAFIL
     Indication: PRODUCT USED FOR UNKNOWN INDICATION
     Dosage: UNK
     Route: 065
  6. BACTRIM [Suspect]
     Active Substance: SULFAMETHOXAZOLE\TRIMETHOPRIM
     Indication: INFUSION SITE CELLULITIS
     Dosage: UNK, BID FOR 10 DAYS
     Route: 065
     Dates: start: 201809, end: 20181003
  7. SILDENAFIL. [Suspect]
     Active Substance: SILDENAFIL
     Dosage: 40 MG, TID
     Route: 065
     Dates: start: 20181014

REACTIONS (10)
  - Blood pressure decreased [Not Recovered/Not Resolved]
  - Headache [Recovered/Resolved]
  - Infusion site induration [Not Recovered/Not Resolved]
  - Abdominal rigidity [Unknown]
  - Infusion site cellulitis [Not Recovered/Not Resolved]
  - Infusion site swelling [Unknown]
  - Presyncope [Unknown]
  - Infusion site pain [Unknown]
  - Drug hypersensitivity [Unknown]
  - Infusion site discharge [Not Recovered/Not Resolved]

NARRATIVE: CASE EVENT DATE: 2018
